FAERS Safety Report 14822788 (Version 3)
Quarter: 2018Q4

REPORT INFORMATION
  Report Type: Spontaneous
  Country: US (occurrence: US)
  Receive Date: 20180427
  Receipt Date: 20181206
  Transmission Date: 20190204
  Serious: No
  Sender: FDA-Public Use
  Company Number: US-PFIZER INC-2018171024

PATIENT
  Sex: Female

DRUGS (2)
  1. WATER BACTERIOSTATIC [Suspect]
     Active Substance: WATER
     Indication: INJECTION
     Dosage: 0.1 - 1 ML, 5 TIMES A DAY
     Dates: start: 201801, end: 201802
  2. WATER BACTERIOSTATIC [Suspect]
     Active Substance: WATER
     Dosage: UNK

REACTIONS (2)
  - Injection site pain [Recovered/Resolved]
  - Intentional product misuse [Unknown]

NARRATIVE: CASE EVENT DATE: 20180108
